FAERS Safety Report 8515779-7 (Version None)
Quarter: 2012Q3

REPORT INFORMATION
  Report Type: 
  Country: None (occurrence: None)
  Receive Date: 20120717
  Receipt Date: 20120706
  Transmission Date: 20120928
  Serious: Yes (Death)
  Sender: FDA-Public Use
  Company Number: US-CUBIST-2012S1000427

PATIENT
  Age: 79 Year
  Sex: Male
  Weight: 84.8 kg

DRUGS (10)
  1. HEPARIN [Concomitant]
     Indication: PROPHYLAXIS
     Dates: start: 20100626, end: 20100705
  2. CUBICIN [Suspect]
     Indication: OSTEOMYELITIS
     Route: 042
     Dates: start: 20100629, end: 20100705
  3. CUBICIN [Suspect]
     Route: 042
     Dates: start: 20100629, end: 20100705
  4. INSULIN ASPART [Concomitant]
     Indication: DIABETES MELLITUS
     Route: 058
     Dates: start: 20100626, end: 20100705
  5. CUBICIN [Suspect]
     Indication: STAPHYLOCOCCAL BACTERAEMIA
     Route: 042
     Dates: start: 20100629, end: 20100705
  6. CARVEDILOL [Concomitant]
     Indication: CORONARY ARTERY DISEASE
     Route: 048
     Dates: start: 20100626, end: 20100629
  7. CLOPIDOGREL [Concomitant]
     Indication: CORONARY ARTERY DISEASE
     Route: 048
     Dates: start: 20100627, end: 20100705
  8. CUBICIN [Suspect]
     Route: 042
     Dates: start: 20100629, end: 20100705
  9. LANSOPRAZOLE [Concomitant]
     Indication: PROPHYLAXIS
     Route: 048
     Dates: start: 20100703, end: 20100705
  10. PIPERACILLIN AND TAZOBACTAM [Concomitant]
     Indication: PRODUCT USED FOR UNKNOWN INDICATION
     Route: 042
     Dates: start: 20100626, end: 20100705

REACTIONS (1)
  - RESPIRATORY FAILURE [None]
